FAERS Safety Report 4411228-9 (Version None)
Quarter: 2004Q2

REPORT INFORMATION
  Report Type: 
  Country: None (occurrence: None)
  Receive Date: 20040630
  Receipt Date: 20040517
  Transmission Date: 20050107
  Serious: No
  Sender: FDA-Public Use
  Company Number: 04P-163-0261056-00

PATIENT
  Sex: Male
  Weight: 97.977 kg

DRUGS (15)
  1. HUMIRA [Suspect]
     Dosage: 40 MG, 1 IN 2 WK, SUBCUTANEOUS
     Route: 058
     Dates: start: 20031030, end: 20040130
  2. HUMIRA [Suspect]
     Dosage: 40 MG, 1 IN 1 WK, SUBCUTANEOUS
     Route: 058
     Dates: start: 20040131
  3. PREDNISONE [Concomitant]
  4. METFORMIN HCL [Interacting]
  5. GLIPIZIDE [Concomitant]
  6. IRBESARTAN [Concomitant]
  7. WARFARIN SODIUM [Concomitant]
  8. ATENOLOL [Concomitant]
  9. FOLIC ACID [Concomitant]
  10. LEFLUNOMIDE [Concomitant]
  11. CYANOCOBALAMIN [Concomitant]
  12. TOCOPHEROL CONCENTRATE CAP [Concomitant]
  13. MULTI-VITAMINS [Concomitant]
  14. CALCIUM [Concomitant]
  15. NICOTINIC ACID [Concomitant]

REACTIONS (5)
  - COUGH [None]
  - DRUG EFFECT DECREASED [None]
  - DYSPNOEA [None]
  - INSOMNIA [None]
  - NASOPHARYNGITIS [None]
